FAERS Safety Report 6030601-9 (Version None)
Quarter: 2009Q1

REPORT INFORMATION
  Report Type: 
  Country: None (occurrence: None)
  Receive Date: 20090107
  Receipt Date: 20090106
  Transmission Date: 20090719
  Serious: Yes (Death)
  Sender: FDA-Public Use
  Company Number: FR-AMGEN-UK263967

PATIENT
  Age: 64 Year
  Sex: Male
  Weight: 55 kg

DRUGS (10)
  1. ARANESP [Suspect]
     Indication: ANAEMIA OF MALIGNANT DISEASE
     Route: 065
     Dates: start: 20070728
  2. ATARAX [Concomitant]
     Route: 065
     Dates: start: 20070515
  3. FLECAINE [Concomitant]
     Route: 065
     Dates: start: 20070226
  4. AMIODARONE HCL [Concomitant]
     Route: 065
     Dates: start: 20070515
  5. ESCITALOPRAM [Concomitant]
     Route: 065
     Dates: start: 20070713
  6. INIPOMP [Concomitant]
     Route: 065
     Dates: start: 20071231
  7. FUROSEMIDE [Concomitant]
     Route: 065
     Dates: start: 20070515
  8. SPIRIVA [Concomitant]
     Route: 065
     Dates: start: 20070426
  9. DIFFU K [Concomitant]
     Route: 065
     Dates: start: 20070515
  10. GRANOCYTE [Concomitant]
     Route: 058
     Dates: start: 20070728

REACTIONS (8)
  - AGITATION [None]
  - BODY TEMPERATURE INCREASED [None]
  - DEATH [None]
  - DYSKINESIA [None]
  - HEADACHE [None]
  - HYPOTONIA [None]
  - INJECTION SITE PAIN [None]
  - PALPITATIONS [None]
